FAERS Safety Report 5955110-4 (Version None)
Quarter: 2008Q4

REPORT INFORMATION
  Report Type: 
  Country: None (occurrence: None)
  Receive Date: 20081112
  Receipt Date: 20081030
  Transmission Date: 20090506
  Serious: Yes (Hospitalization)
  Sender: FDA-Public Use
  Company Number: 004883

PATIENT
  Age: 53 Year
  Sex: Male

DRUGS (8)
  1. BUSULFEX [Suspect]
     Indication: STEM CELL TRANSPLANT
     Dosage: 8 ML, TID INTRAVENOUS; 8 ML, QID; INTRACAVERNOUS; 8 ML, QD; INTRAVENOUS
     Dates: start: 20071009, end: 20071009
  2. BUSULFEX [Suspect]
     Indication: STEM CELL TRANSPLANT
     Dosage: 8 ML, TID INTRAVENOUS; 8 ML, QID; INTRACAVERNOUS; 8 ML, QD; INTRAVENOUS
     Dates: start: 20071010, end: 20071012
  3. BUSULFEX [Suspect]
     Indication: STEM CELL TRANSPLANT
     Dosage: 8 ML, TID INTRAVENOUS; 8 ML, QID; INTRACAVERNOUS; 8 ML, QD; INTRAVENOUS
     Dates: start: 20071013, end: 20071013
  4. DEPAKENE [Concomitant]
  5. CYCLOPHOSPHAMIDE [Concomitant]
  6. NEUTROGIN (LENOGRASTIM) [Concomitant]
  7. METHOTREXATE [Concomitant]
  8. CYCLOSPORINE [Concomitant]

REACTIONS (9)
  - CYTOMEGALOVIRUS VIRAEMIA [None]
  - DIARRHOEA [None]
  - FEBRILE NEUTROPENIA [None]
  - HEPATIC FUNCTION ABNORMAL [None]
  - HYPERKALAEMIA [None]
  - HYPONATRAEMIA [None]
  - NAUSEA [None]
  - RENAL IMPAIRMENT [None]
  - STOMATITIS [None]
